FAERS Safety Report 6055679-8 (Version None)
Quarter: 2009Q1

REPORT INFORMATION
  Report Type: 
  Country: None (occurrence: None)
  Receive Date: 20090128
  Receipt Date: 20090121
  Transmission Date: 20090719
  Serious: Yes (Other)
  Sender: FDA-Public Use
  Company Number: US-ASTRAZENECA-2009UW02114

PATIENT
  Sex: Female

DRUGS (4)
  1. CRESTOR [Suspect]
     Indication: HYPERCHOLESTEROLAEMIA
     Route: 048
     Dates: start: 20090101
  2. CRESTOR [Suspect]
     Route: 048
     Dates: start: 20090101
  3. COENZYME Q10 [Concomitant]
  4. SALMON OIL [Concomitant]

REACTIONS (4)
  - BREAST CANCER [None]
  - DIZZINESS [None]
  - DYSPNOEA [None]
  - MYALGIA [None]
